FAERS Safety Report 8229105-4 (Version None)
Quarter: 2012Q1

REPORT INFORMATION
  Report Type: 
  Country: None (occurrence: None)
  Receive Date: 20120322
  Receipt Date: 20120312
  Transmission Date: 20120608
  Serious: Yes (Hospitalization)
  Sender: FDA-Public Use
  Company Number: FR-ASTRAZENECA-2012SE01696

PATIENT
  Age: 60 Year
  Sex: Male

DRUGS (2)
  1. QUETIAPINE FUMARATE [Suspect]
     Route: 048
     Dates: start: 20111121, end: 20111223
  2. PRAZEPAM [Concomitant]

REACTIONS (1)
  - JAUNDICE [None]
